FAERS Safety Report 8949556 (Version 1)
Quarter: 2012Q4

REPORT INFORMATION
  Report Type: 
  Country: FI (occurrence: FI)
  Receive Date: 20121206
  Receipt Date: 20121206
  Transmission Date: 20130627
  Serious: Yes (Hospitalization)
  Sender: FDA-Public Use
  Company Number: FI-ELI_LILLY_AND_COMPANY-FI201211007670

PATIENT
  Sex: Female

DRUGS (12)
  1. FORSTEO [Suspect]
     Indication: OSTEOPOROSIS
     Dosage: 20 ug, qd
     Route: 058
     Dates: start: 20110103
  2. NORSPAN [Concomitant]
     Indication: PAIN
     Dosage: UNK, unknown
     Route: 065
  3. BURANA [Concomitant]
     Indication: PAIN
     Dosage: UNK, unknown
     Route: 065
  4. TEMGESIC [Concomitant]
     Indication: PAIN
     Dosage: UNK, unknown
     Route: 065
  5. PANADOL [Concomitant]
     Indication: PAIN
     Dosage: UNK, unknown
     Route: 065
  6. PANACOD [Concomitant]
     Indication: PAIN
     Dosage: UNK, unknown
     Route: 065
  7. LYRICA [Concomitant]
     Indication: PAIN
     Dosage: UNK, unknown
     Route: 065
  8. NEXIUM [Concomitant]
     Dosage: UNK, unknown
     Route: 065
  9. KALCIPOS-D [Concomitant]
     Indication: MEDICAL DIET
     Dosage: UNK, unknown
     Route: 065
  10. STESOLID [Concomitant]
     Indication: MUSCLE RELAXANT THERAPY
     Dosage: UNK, unknown
     Route: 065
  11. NORFLEX                            /00018303/ [Concomitant]
     Indication: MUSCLE RELAXANT THERAPY
     Dosage: UNK, unknown
     Route: 065
  12. MIACALCIC [Concomitant]
     Dosage: UNK, unknown
     Route: 065

REACTIONS (2)
  - Condition aggravated [Not Recovered/Not Resolved]
  - Urinary tract infection [Not Recovered/Not Resolved]
